FAERS Safety Report 9410977 (Version 1)
Quarter: 2013Q3

REPORT INFORMATION
  Report Type: Spontaneous
  Country: US (occurrence: US)
  Receive Date: 20130719
  Receipt Date: 20130719
  Transmission Date: 20140515
  Serious: Yes (Other)
  Sender: FDA-Public Use
  Company Number: US-B.I. PHARMACEUTICALS,INC./RIDGEFIELD-2013-BI-20756BP

PATIENT
  Sex: Male
  Weight: 84 kg

DRUGS (16)
  1. SPIRIVA [Suspect]
     Indication: CHRONIC OBSTRUCTIVE PULMONARY DISEASE
     Dosage: 18 MCG
     Route: 055
     Dates: start: 2008, end: 2010
  2. COMBIVENT [Suspect]
     Indication: CHRONIC OBSTRUCTIVE PULMONARY DISEASE
     Dosage: STRENGTH: 20 MCG / 100 MCG; DAILY DOSE: 80 MCG / 400 MCG
     Route: 055
     Dates: start: 20130713
  3. COMBIVENT [Suspect]
     Dosage: STRENGTH: 20 MCG / 100 MCG; DAILY DOSE: 160 MCG / 800 MCG
     Route: 055
     Dates: start: 201306, end: 20130712
  4. COMBIVENT [Suspect]
     Indication: CHRONIC OBSTRUCTIVE PULMONARY DISEASE
     Dosage: STRENGTH: 18 MCG / 103 MCG; DAILY DOSE: 2 PUFFS
     Route: 055
     Dates: start: 2010, end: 201306
  5. SYMBICORT [Concomitant]
     Indication: ASTHMA
     Dosage: 4 PUF
     Route: 055
     Dates: start: 2007
  6. NITRO-STAT [Concomitant]
     Indication: ANGINA PECTORIS
     Route: 048
     Dates: start: 1987
  7. FISH OIL [Concomitant]
     Indication: SUPPLEMENTATION THERAPY
     Dosage: 1 ANZ
     Route: 048
     Dates: start: 2003
  8. SERTRALINE [Concomitant]
     Indication: ANXIETY
     Dosage: 25 MG
     Route: 048
     Dates: start: 201307
  9. IRBESARTAN [Concomitant]
     Indication: HYPERTENSION
     Dosage: 150 MG
     Route: 048
     Dates: start: 201306
  10. XANAX [Concomitant]
     Indication: ANXIETY
     Route: 048
     Dates: start: 2001
  11. METAMUCIL [Concomitant]
     Indication: SUPPLEMENTATION THERAPY
     Dosage: (POWDER) STRENGTH: 1 TBSP; DAILY DOSE: 1 TBSP
     Route: 048
     Dates: start: 2009
  12. VERAPAMIL [Concomitant]
     Indication: HYPERTENSION
     Dosage: 120 MG
     Route: 048
     Dates: start: 1987
  13. SIMVASTATIN [Concomitant]
     Indication: BLOOD CHOLESTEROL INCREASED
     Dosage: 40 MG
     Route: 048
     Dates: start: 1987
  14. GLUCOSAMINE + CHONDROITIN [Concomitant]
     Indication: ARTHRITIS
     Dosage: STRENGTH: 1500 MG / 1200 MG; DAILY DOSE: 1500 MG / 1200 MG
     Route: 048
     Dates: start: 2009
  15. ASPIRIN [Concomitant]
     Indication: ANTICOAGULANT THERAPY
     Dosage: 81 MG
     Route: 048
     Dates: start: 1987
  16. PRESERVISION [Concomitant]
     Indication: SUPPLEMENTATION THERAPY
     Dosage: 1 ANZ
     Route: 048
     Dates: start: 2001

REACTIONS (5)
  - Lung neoplasm malignant [Recovered/Resolved]
  - Dyspnoea [Not Recovered/Not Resolved]
  - Retinal haemorrhage [Recovered/Resolved]
  - Cataract [Not Recovered/Not Resolved]
  - Prescribed overdose [Recovered/Resolved]
